FAERS Safety Report 5708991-3 (Version None)
Quarter: 2008Q2

REPORT INFORMATION
  Report Type: 
  Country: None (occurrence: None)
  Receive Date: 20080414
  Receipt Date: 20080414
  Transmission Date: 20081010
  Serious: Yes (Hospitalization, Disabling, Other)
  Sender: FDA-Public Use
  Company Number: None

PATIENT
  Age: 68 Year
  Sex: Male
  Weight: 81.6475 kg

DRUGS (1)
  1. EXELON [Suspect]
     Indication: DEMENTIA ALZHEIMER'S TYPE
     Dosage: PATCH ONE WEEK CUTANEOUS
     Route: 003
     Dates: start: 20080401, end: 20080408

REACTIONS (5)
  - AGGRESSION [None]
  - AGITATION [None]
  - INSOMNIA [None]
  - NERVOUSNESS [None]
  - PARANOIA [None]
